FAERS Safety Report 9917043 (Version 3)
Quarter: 2014Q2

REPORT INFORMATION
  Report Type: Spontaneous
  Country: DE (occurrence: DE)
  Receive Date: 20140221
  Receipt Date: 20140423
  Transmission Date: 20141212
  Serious: Yes (Hospitalization)
  Sender: FDA-Public Use
  Company Number: DE-GLAXOSMITHKLINE-D0082941A

PATIENT
  Age: 80 Year
  Sex: Female
  Weight: 64 kg

DRUGS (7)
  1. TAFINLAR [Suspect]
     Indication: MALIGNANT MELANOMA
     Dosage: 2CAP TWICE PER DAY
     Route: 048
     Dates: start: 20131030, end: 20140130
  2. RAMIPRIL [Concomitant]
     Dosage: 5MG PER DAY
     Route: 065
  3. HCT [Concomitant]
     Route: 065
  4. METFORMIN [Concomitant]
     Dosage: 1275MG PER DAY
     Route: 048
  5. BISOPROLOL [Concomitant]
     Dosage: 2.5MG PER DAY
     Route: 065
  6. MORPHIN [Concomitant]
     Dosage: 10MG TWICE PER DAY
     Route: 065
  7. TOREM [Concomitant]
     Dosage: 10MG PER DAY
     Route: 065

REACTIONS (9)
  - Cardiomyopathy [Recovered/Resolved]
  - Dyspnoea [Recovering/Resolving]
  - Asthenia [Recovering/Resolving]
  - Abdominal pain upper [Recovered/Resolved]
  - Chest pain [Unknown]
  - Cardiac failure [Unknown]
  - Pleural effusion [Unknown]
  - Mitral valve incompetence [Unknown]
  - Febrile infection [Recovered/Resolved]
